FAERS Safety Report 22334426 (Version 2)
Quarter: 2025Q4

REPORT INFORMATION
  Report Type: Report from Study
  Country: IN (occurrence: IN)
  Receive Date: 20230517
  Receipt Date: 20251008
  Transmission Date: 20260117
  Serious: Yes (Other)
  Sender: ROCHE
  Company Number: IN-ROCHE-3349928

PATIENT
  Age: 65 Year
  Sex: Female

DRUGS (2)
  1. TRASTUZUMAB [Suspect]
     Active Substance: TRASTUZUMAB
     Indication: Breast cancer
     Dosage: FREQUENCY TEXT:21??TOOK HER LAST DOSE IN FEB/2024
     Route: 042
     Dates: start: 20220822
  2. TRASTUZUMAB [Suspect]
     Active Substance: TRASTUZUMAB
     Dosage: FREQUENCY TEXT:21
     Route: 042
     Dates: start: 20220910

REACTIONS (1)
  - Cataract [Unknown]
